FAERS Safety Report 24618032 (Version 2)
Quarter: 2025Q2

REPORT INFORMATION
  Report Type: Spontaneous
  Country: BR (occurrence: BR)
  Receive Date: 20241114
  Receipt Date: 20250501
  Transmission Date: 20250716
  Serious: Yes (Hospitalization)
  Sender: JOHNSON AND JOHNSON
  Company Number: BR-JNJFOC-20241121576

PATIENT
  Sex: Female
  Weight: 59 kg

DRUGS (1)
  1. TECLISTAMAB [Suspect]
     Active Substance: TECLISTAMAB
     Indication: Plasma cell myeloma
     Route: 065

REACTIONS (4)
  - Confusional state [Recovering/Resolving]
  - Somnolence [Recovering/Resolving]
  - Cardiac disorder [Recovering/Resolving]
  - Asthenia [Recovering/Resolving]
